FAERS Safety Report 26182682 (Version 1)
Quarter: 2025Q4

REPORT INFORMATION
  Report Type: Spontaneous
  Country: US (occurrence: US)
  Receive Date: 20251221
  Receipt Date: 20251221
  Transmission Date: 20260118
  Serious: Yes (Hospitalization)
  Sender: DIFGEN PHARMACEUTICALS LLC
  Company Number: US-Difgen-012321

PATIENT
  Age: 72 Year
  Sex: Female

DRUGS (5)
  1. OMEPRAZOLE [Concomitant]
     Active Substance: OMEPRAZOLE
     Indication: Product used for unknown indication
     Dosage: 40MG 1 CAPSULE BY MOUTH DAILY
     Route: 065
  2. ZOLOFT [Concomitant]
     Active Substance: SERTRALINE HYDROCHLORIDE
     Indication: Depression
     Route: 065
  3. CARVEDILOL [Concomitant]
     Active Substance: CARVEDILOL
     Indication: Blood pressure abnormal
     Dosage: 6.25MG TAB
     Route: 065
  4. METFORMIN [Concomitant]
     Active Substance: METFORMIN HYDROCHLORIDE
     Indication: Diabetes mellitus
     Dosage: 500MG, 1 TAB
     Route: 065
  5. BUPRENORPHINE\NALOXONE [Suspect]
     Active Substance: BUPRENORPHINE\NALOXONE
     Indication: Drug rehabilitation
     Dosage: 4MG/1MG
     Route: 060
     Dates: start: 202512

REACTIONS (10)
  - Infection [Unknown]
  - Drooling [Unknown]
  - Bone pain [Unknown]
  - Feeding disorder [Unknown]
  - Arthralgia [Unknown]
  - Product substitution issue [Unknown]
  - Product size issue [Unknown]
  - Product physical issue [Unknown]
  - Somatic symptom disorder [Unknown]
  - Pruritus [Unknown]

NARRATIVE: CASE EVENT DATE: 20251201
